FAERS Safety Report 5817689-2 (Version None)
Quarter: 2008Q3

REPORT INFORMATION
  Report Type: 
  Country: None (occurrence: None)
  Receive Date: 20080722
  Receipt Date: 20070607
  Transmission Date: 20090109
  Serious: No
  Sender: FDA-Public Use
  Company Number: US-TYCO HEALTHCARE/MALLINCKRODT-T200700669

PATIENT

DRUGS (5)
  1. OCTREOSCAN [Suspect]
     Indication: SOMATOSTATIN RECEPTOR SCAN
     Dosage: 5.15 MCI, SINGLE
     Route: 042
     Dates: start: 20070604, end: 20070604
  2. DEMEROL [Concomitant]
     Indication: ANXIETY
     Dosage: PRIOR TO SCAN
     Route: 042
     Dates: start: 20070605, end: 20070605
  3. DEMEROL [Concomitant]
     Dosage: PRIOR TO SCAN
     Route: 042
     Dates: start: 20070606, end: 20070606
  4. ATIVAN [Concomitant]
     Indication: ANXIETY
     Dosage: PRIOR TO SCAN
     Route: 042
     Dates: start: 20070605, end: 20070605
  5. ATIVAN [Concomitant]
     Dosage: PRIOR TO SCAN
     Route: 042
     Dates: start: 20070606, end: 20070606

REACTIONS (5)
  - ABDOMINAL PAIN [None]
  - CHEST DISCOMFORT [None]
  - DIZZINESS [None]
  - HEADACHE [None]
  - VOMITING [None]
